FAERS Safety Report 17527231 (Version 2)
Quarter: 2020Q1

REPORT INFORMATION
  Report Type: Spontaneous
  Country: US (occurrence: US)
  Receive Date: 20200311
  Receipt Date: 20200327
  Transmission Date: 20200409
  Serious: No
  Sender: FDA-Public Use
  Company Number: US-PFIZER INC-2020104137

PATIENT
  Age: 69 Year
  Sex: Male
  Weight: 105 kg

DRUGS (1)
  1. PREGABALIN. [Suspect]
     Active Substance: PREGABALIN
     Indication: DIABETIC NEUROPATHY
     Dosage: 75 MG, 3X/DAY
     Route: 048
     Dates: start: 2019

REACTIONS (10)
  - Drug ineffective [Unknown]
  - Peripheral swelling [Unknown]
  - Diarrhoea [Unknown]
  - Insomnia [Unknown]
  - Disturbance in attention [Unknown]
  - Dyskinesia [Unknown]
  - Limb discomfort [Unknown]
  - Neuralgia [Unknown]
  - Abdominal discomfort [Not Recovered/Not Resolved]
  - Pain [Not Recovered/Not Resolved]

NARRATIVE: CASE EVENT DATE: 2019
